FAERS Safety Report 6007178-7 (Version None)
Quarter: 2008Q4

REPORT INFORMATION
  Report Type: 
  Country: None (occurrence: None)
  Receive Date: 20081217
  Receipt Date: 20081215
  Transmission Date: 20090506
  Serious: Yes (Other)
  Sender: FDA-Public Use
  Company Number: DE-ASTRAZENECA-2008PK02714

PATIENT
  Age: 58 Year
  Sex: Female
  Weight: 54 kg

DRUGS (3)
  1. PROPOFOL [Suspect]
     Indication: SEDATION
     Route: 042
  2. MIDAZOLAM HCL [Concomitant]
     Indication: SEDATION
     Route: 042
  3. BUSCOPAN [Concomitant]
     Indication: COLONOSCOPY
     Route: 042

REACTIONS (1)
  - CONVULSION [None]
